FAERS Safety Report 15402093 (Version 1)
Quarter: 2018Q3

REPORT INFORMATION
  Report Type: Spontaneous
  Country: GB (occurrence: GB)
  Receive Date: 20180919
  Receipt Date: 20180919
  Transmission Date: 20181010
  Serious: Yes (Other)
  Sender: FDA-Public Use
  Company Number: GB-GLAXOSMITHKLINE-GB2018166743

PATIENT
  Age: 31 Year
  Sex: Female
  Weight: 69 kg

DRUGS (4)
  1. ESCITALOPRAM [Concomitant]
     Active Substance: ESCITALOPRAM OXALATE
     Indication: PRODUCT USED FOR UNKNOWN INDICATION
     Dosage: UNK
     Route: 065
  2. VENTOLIN [Concomitant]
     Active Substance: ALBUTEROL SULFATE
     Indication: PRODUCT USED FOR UNKNOWN INDICATION
     Dosage: UNK
     Route: 065
  3. DOXYCYCLINE. [Concomitant]
     Active Substance: DOXYCYCLINE
     Indication: PRODUCT USED FOR UNKNOWN INDICATION
     Dosage: UNK
     Route: 065
  4. DUAC [Suspect]
     Active Substance: BENZOYL PEROXIDE\CLINDAMYCIN PHOSPHATE
     Indication: ACNE
     Dosage: APPLY AT NIGHT.
     Route: 061
     Dates: start: 20180822, end: 20180823

REACTIONS (5)
  - Application site swelling [Not Recovered/Not Resolved]
  - Application site erythema [Not Recovered/Not Resolved]
  - Application site pruritus [Recovering/Resolving]
  - Blister [Recovering/Resolving]
  - Application site burn [Recovering/Resolving]

NARRATIVE: CASE EVENT DATE: 20180824
